FAERS Safety Report 22648781 (Version 1)
Quarter: 2023Q2

REPORT INFORMATION
  Report Type: Spontaneous
  Country: CN (occurrence: CN)
  Receive Date: 20230628
  Receipt Date: 20230628
  Transmission Date: 20230722
  Serious: Yes (Other)
  Sender: FDA-Public Use
  Company Number: CN-SA-SAC20230627000256

PATIENT
  Age: 56 Year
  Sex: Female
  Weight: 64 kg

DRUGS (16)
  1. ELOXATIN [Suspect]
     Active Substance: OXALIPLATIN
     Indication: Colon cancer stage IV
     Dosage: 120 MG, QD
     Route: 041
     Dates: start: 20230412, end: 20230412
  2. ELOXATIN [Suspect]
     Active Substance: OXALIPLATIN
     Indication: Myelosuppression
  3. ELOXATIN [Suspect]
     Active Substance: OXALIPLATIN
     Indication: Hepatic failure
  4. ELOXATIN [Suspect]
     Active Substance: OXALIPLATIN
     Indication: Hypertension
  5. FLUOROURACIL [Suspect]
     Active Substance: FLUOROURACIL
     Indication: Colon cancer stage IV
     Dosage: 0.6 G, QD
     Dates: start: 20230412, end: 20230412
  6. FLUOROURACIL [Suspect]
     Active Substance: FLUOROURACIL
     Indication: Myelosuppression
     Dosage: 3.6 G, QD
     Dates: start: 20230412, end: 20230412
  7. FLUOROURACIL [Suspect]
     Active Substance: FLUOROURACIL
     Indication: Hypertension
  8. FLUOROURACIL [Suspect]
     Active Substance: FLUOROURACIL
     Indication: Hepatic failure
  9. SODIUM CHLORIDE [Concomitant]
     Active Substance: SODIUM CHLORIDE
     Indication: Colon cancer stage IV
     Dosage: 20 ML, QD
     Dates: start: 20230412, end: 20230412
  10. SODIUM CHLORIDE [Concomitant]
     Active Substance: SODIUM CHLORIDE
     Indication: Hepatic failure
     Dosage: 86 ML, QD
     Dates: start: 20230412, end: 20230412
  11. SODIUM CHLORIDE [Concomitant]
     Active Substance: SODIUM CHLORIDE
     Indication: Hypertension
  12. SODIUM CHLORIDE [Concomitant]
     Active Substance: SODIUM CHLORIDE
     Indication: Myelosuppression
  13. DEXTROSE [Concomitant]
     Active Substance: DEXTROSE\DEXTROSE MONOHYDRATE
     Indication: Colon cancer stage IV
     Dosage: 500 ML, QD
     Route: 042
     Dates: start: 20230412, end: 20230412
  14. DEXTROSE [Concomitant]
     Active Substance: DEXTROSE\DEXTROSE MONOHYDRATE
     Indication: Myelosuppression
  15. CETUXIMAB [Concomitant]
     Active Substance: CETUXIMAB
     Indication: Colon cancer stage IV
     Dosage: 0.5 G
     Dates: start: 20230412
  16. CETUXIMAB [Concomitant]
     Active Substance: CETUXIMAB
     Indication: Myelosuppression

REACTIONS (7)
  - Paronychia [Recovering/Resolving]
  - Pustule [Recovering/Resolving]
  - Haemorrhage [Recovering/Resolving]
  - Erythema [Recovering/Resolving]
  - Swelling [Recovering/Resolving]
  - Effusion [Recovering/Resolving]
  - Tenderness [Recovering/Resolving]

NARRATIVE: CASE EVENT DATE: 20230412
